FAERS Safety Report 8797390 (Version 1)
Quarter: 2012Q4

REPORT INFORMATION
  Report Type: 
  Country: US (occurrence: US)
  Receive Date: 20120920
  Receipt Date: 20120920
  Transmission Date: 20130627
  Serious: Yes (Hospitalization)
  Sender: FDA-Public Use
  Company Number: US-INCYTE CORPORATION-2012IN001780

PATIENT
  Sex: Female

DRUGS (3)
  1. JAKAFI [Suspect]
     Indication: MYELOFIBROSIS
     Dosage: 5 mg, bid
     Route: 048
     Dates: start: 20120727
  2. OMEPRAZOLE [Concomitant]
  3. ASPIRIN [Concomitant]

REACTIONS (1)
  - Hospitalisation [Unknown]
